FAERS Safety Report 7774190-7 (Version None)
Quarter: 2011Q3

REPORT INFORMATION
  Report Type: 
  Country: None (occurrence: None)
  Receive Date: 20110921
  Receipt Date: 20110906
  Transmission Date: 20111222
  Serious: Yes (Life-Threatening, Hospitalization, Other)
  Sender: FDA-Public Use
  Company Number: 2011MA013061

PATIENT
  Age: 51 Year
  Sex: Female
  Weight: 66 kg

DRUGS (2)
  1. CLONIDINE HYDROCHLORIDE [Suspect]
     Indication: PAIN
     Dosage: 200 MCG;QD;INTH
     Route: 037
  2. MORPHINE [Suspect]
     Indication: PAIN
     Dosage: 1 MG;QD;INTH
     Route: 037

REACTIONS (21)
  - HYPERTENSION [None]
  - NO THERAPEUTIC RESPONSE [None]
  - TOXICITY TO VARIOUS AGENTS [None]
  - DIZZINESS [None]
  - VENTRICULAR DYSFUNCTION [None]
  - INCORRECT ROUTE OF DRUG ADMINISTRATION [None]
  - HYPERHIDROSIS [None]
  - ACIDOSIS [None]
  - DEPRESSED LEVEL OF CONSCIOUSNESS [None]
  - MYDRIASIS [None]
  - ACCIDENTAL OVERDOSE [None]
  - CONFUSIONAL STATE [None]
  - BRADYCARDIA [None]
  - RESPIRATORY RATE DECREASED [None]
  - CARDIAC FAILURE [None]
  - DEVICE COMPONENT ISSUE [None]
  - HAEMODYNAMIC INSTABILITY [None]
  - PUPILS UNEQUAL [None]
  - HYPOTENSION [None]
  - ACUTE MYOCARDIAL INFARCTION [None]
  - PULMONARY EMBOLISM [None]
